FAERS Safety Report 20093118 (Version 1)
Quarter: 2021Q4

REPORT INFORMATION
  Report Type: Spontaneous
  Country: RU (occurrence: None)
  Receive Date: 20211120
  Receipt Date: 20211120
  Transmission Date: 20220303
  Serious: Yes (Other)
  Sender: FDA-Public Use
  Company Number: RU-ROCHE-2959483

PATIENT
  Age: 27 Year
  Sex: Female

DRUGS (3)
  1. AVASTIN [Suspect]
     Active Substance: BEVACIZUMAB
     Indication: Pseudomyxoma peritonei
     Dosage: UNKNOWN
     Route: 065
  2. XELODA [Suspect]
     Active Substance: CAPECITABINE
     Indication: Pseudomyxoma peritonei
     Dosage: UNKNOWN
     Route: 048
  3. OXALIPLATIN [Suspect]
     Active Substance: OXALIPLATIN
     Indication: Pseudomyxoma peritonei
     Route: 065

REACTIONS (2)
  - Cytoreductive surgery [Unknown]
  - Hyperthermic chemotherapy [Unknown]
